FAERS Safety Report 11684245 (Version 3)
Quarter: 2016Q1

REPORT INFORMATION
  Report Type: Spontaneous
  Country: US (occurrence: US)
  Receive Date: 20151029
  Receipt Date: 20160114
  Transmission Date: 20160525
  Serious: No
  Sender: FDA-Public Use
  Company Number: ALCN2015US006799

PATIENT
  Age: 63 Year
  Sex: Male

DRUGS (1)
  1. NATAMYCIN [Suspect]
     Active Substance: NATAMYCIN
     Indication: ANTIFUNGAL TREATMENT
     Dosage: 1 GTT, QID
     Route: 047
     Dates: start: 20151022

REACTIONS (1)
  - Medication residue present [Recovering/Resolving]

NARRATIVE: CASE EVENT DATE: 20151022
